FAERS Safety Report 20678839 (Version 7)
Quarter: 2023Q4

REPORT INFORMATION
  Report Type: Report from Study
  Country: DE (occurrence: None)
  Receive Date: 20220406
  Receipt Date: 20231204
  Transmission Date: 20240109
  Serious: Yes (Hospitalization)
  Sender: FDA-Public Use
  Company Number: DE-ROCHE-3062002

PATIENT
  Age: 58 Year
  Sex: Male

DRUGS (5)
  1. ATEZOLIZUMAB [Suspect]
     Active Substance: ATEZOLIZUMAB
     Indication: Bile duct cancer
     Dosage: DATE OF LAST ADMINISTRATION BEFORE ONSET OF EVENT: 24/MAR/2022?ON DAY 1 OF EACH 14-DAY
     Route: 041
     Dates: start: 20220210, end: 20220519
  2. BEVACIZUMAB [Suspect]
     Active Substance: BEVACIZUMAB
     Indication: Bile duct cancer
     Dosage: DATE OF LAST ADMINISTRATION BEFORE ONSET OF EVENT: 24/MAR/2022, 14/APR/2022 (880MG)?ON DAY 1 OF EACH
     Route: 042
     Dates: start: 20220210, end: 20220414
  3. LEUCOVORIN [Concomitant]
     Active Substance: LEUCOVORIN\LEUCOVORIN CALCIUM
     Indication: Bile duct cancer
     Dosage: D,L RACEMIC FORM, 400 MG/M2?MOST RECENT DOSE ON 14/APR/2022 IS 800 MG/M2
     Route: 042
     Dates: start: 20220210, end: 20220617
  4. FLUOROURACIL [Concomitant]
     Active Substance: FLUOROURACIL
     Indication: Bile duct cancer
     Dosage: MOST RECENT DOSE ON 14/APR/2022 IS 4800 MG/M2
     Route: 042
     Dates: start: 20220210, end: 20220617
  5. OXALIPLATIN [Concomitant]
     Active Substance: OXALIPLATIN
     Indication: Bile duct cancer
     Dosage: MOST RECENT DOSE ON 14/APR/2022 IS 170 MG/M2
     Route: 042
     Dates: start: 20220210, end: 20220617

REACTIONS (2)
  - Pyrexia [Recovered/Resolved]
  - Pyrexia [Recovered/Resolved]

NARRATIVE: CASE EVENT DATE: 20220325
